FAERS Safety Report 8743668 (Version 2)
Quarter: 2012Q4

REPORT INFORMATION
  Report Type: 
  Country: GB (occurrence: GB)
  Receive Date: 20120824
  Receipt Date: 20121018
  Transmission Date: 20130627
  Serious: Yes (Hospitalization, Other)
  Sender: FDA-Public Use
  Company Number: GB-VERTEX PHARMACEUTICAL INC.-000000000000000963

PATIENT
  Age: 50 Year
  Sex: Male
  Weight: 114 kg

DRUGS (6)
  1. INCIVO [Suspect]
     Indication: HEPATITIS C
     Dosage: Dosage Form: Tablet
     Route: 048
     Dates: start: 20120615
  2. RIBAVIRIN [Concomitant]
     Indication: HEPATITIS C
     Dosage: Dosage Form: Unspecified
     Route: 065
     Dates: start: 20120615
  3. PEGYLATED INTERFERON [Concomitant]
     Indication: HEPATITIS C
     Dosage: Dosage Form: Injection
     Route: 058
     Dates: start: 20120615
  4. ATENOLOL [Concomitant]
     Indication: PRODUCT USED FOR UNKNOWN INDICATION
     Dosage: 50 mg, qd
  5. ATENOLOL [Concomitant]
     Dosage: Dosage Form: Unspecified
     Route: 048
  6. ATENOLOL [Concomitant]
     Dosage: Dosage Form: Unspecified
     Route: 048

REACTIONS (2)
  - Retinal detachment [Recovered/Resolved]
  - Anal pruritus [Unknown]
